FAERS Safety Report 6981128-9 (Version None)
Quarter: 2010Q3

REPORT INFORMATION
  Report Type: 
  Country: None (occurrence: None)
  Receive Date: 20100914
  Receipt Date: 20100802
  Transmission Date: 20110219
  Serious: No
  Sender: FDA-Public Use
  Company Number: US-PFIZER INC-2010073195

PATIENT
  Sex: Female
  Weight: 61.224 kg

DRUGS (3)
  1. DEPO-PROVERA [Suspect]
     Indication: CONTRACEPTION
     Dosage: UNK
     Route: 030
  2. DEPO-PROVERA [Suspect]
     Dosage: 150 MG, UNK
     Route: 030
     Dates: start: 20100416
  3. PRENATAL VITAMINS [Concomitant]
     Dosage: UNK
     Route: 048

REACTIONS (8)
  - ALOPECIA [None]
  - BURNING SENSATION [None]
  - DECREASED APPETITE [None]
  - DIZZINESS [None]
  - FATIGUE [None]
  - HEADACHE [None]
  - MENORRHAGIA [None]
  - PRURITUS [None]
